FAERS Safety Report 16497811 (Version 1)
Quarter: 2019Q2

REPORT INFORMATION
  Report Type: Spontaneous
  Country: GB (occurrence: GB)
  Receive Date: 20190628
  Receipt Date: 20190628
  Transmission Date: 20190711
  Serious: Yes (Congenital Anomaly)
  Sender: FDA-Public Use
  Company Number: PHHY2019GB144208

PATIENT

DRUGS (4)
  1. LEVETIRACETAM. [Suspect]
     Active Substance: LEVETIRACETAM
     Indication: FOETAL EXPOSURE DURING PREGNANCY
     Dosage: MOTHER CASE: 1000 OT, QD
     Route: 064
  2. VALPROIC ACID. [Concomitant]
     Active Substance: VALPROIC ACID
     Indication: FOETAL EXPOSURE DURING PREGNANCY
     Dosage: MOTHER DOSE: UNK
     Route: 064
  3. LAMOTRIGINE. [Concomitant]
     Active Substance: LAMOTRIGINE
     Indication: FOETAL EXPOSURE DURING PREGNANCY
     Dosage: MATERNAL DOSE: UNK
     Route: 064
  4. CLOBAZAM. [Concomitant]
     Active Substance: CLOBAZAM
     Indication: FOETAL EXPOSURE DURING PREGNANCY
     Dosage: MOTHER DOSE: UNK
     Route: 064

REACTIONS (3)
  - Spina bifida [Unknown]
  - Hydrocephalus [Unknown]
  - Maternal exposure during pregnancy [Unknown]
